FAERS Safety Report 8547246-9 (Version None)
Quarter: 2012Q3

REPORT INFORMATION
  Report Type: 
  Country: None (occurrence: None)
  Receive Date: 20120727
  Receipt Date: 20120301
  Transmission Date: 20120928
  Serious: No
  Sender: FDA-Public Use
  Company Number: US-ASTRAZENECA-2012SE14414

PATIENT
  Age: 58 Year
  Sex: Male
  Weight: 104.3 kg

DRUGS (2)
  1. SEROQUEL [Suspect]
     Indication: BIPOLAR DISORDER
     Route: 048
     Dates: start: 20020101
  2. NORVASC [Concomitant]
     Indication: HYPERTENSION

REACTIONS (2)
  - INSOMNIA [None]
  - DRUG DOSE OMISSION [None]
